FAERS Safety Report 7247015-6 (Version None)
Quarter: 2011Q1

REPORT INFORMATION
  Report Type: 
  Country: None (occurrence: None)
  Receive Date: 20110127
  Receipt Date: 20110119
  Transmission Date: 20110831
  Serious: Yes (Hospitalization, Other)
  Sender: FDA-Public Use
  Company Number: US-JNJFOC-20101007541

PATIENT

DRUGS (1)
  1. LEVAQUIN [Suspect]
     Indication: INFECTION
     Route: 048

REACTIONS (3)
  - LIGAMENT RUPTURE [None]
  - TENDON RUPTURE [None]
  - ATRIAL FIBRILLATION [None]
